FAERS Safety Report 15010309 (Version 1)
Quarter: 2018Q2

REPORT INFORMATION
  Report Type: Report from Study
  Country: US (occurrence: US)
  Receive Date: 20180614
  Receipt Date: 20180614
  Transmission Date: 20180711
  Serious: Yes (Life-Threatening)
  Sender: FDA-Public Use
  Company Number: US-SA-2018SA148787

PATIENT
  Age: 11 Year
  Sex: Male
  Weight: 43.54 kg

DRUGS (7)
  1. AMCINONIDE. [Concomitant]
     Active Substance: AMCINONIDE
     Dosage: UNK UNK, UNK
     Route: 065
     Dates: start: 2016
  2. MONTELUKAST [Concomitant]
     Active Substance: MONTELUKAST SODIUM
     Dosage: UNK UNK, UNK
     Route: 065
     Dates: start: 2013
  3. CEPHALEXINE [Concomitant]
     Active Substance: CEPHALEXIN
     Dosage: UNK UNK, UNK
     Route: 065
     Dates: start: 20180509, end: 20180516
  4. DUPILUMAB [Suspect]
     Active Substance: DUPILUMAB
     Indication: DERMATITIS ATOPIC
     Dosage: UNK UNK, UNK
     Route: 058
  5. HYDROXYZINE [Concomitant]
     Active Substance: HYDROXYZINE HYDROCHLORIDE
     Dosage: UNK UNK, UNK
     Route: 065
     Dates: start: 20180509
  6. TRIAMCINOLONE [Concomitant]
     Active Substance: TRIAMCINOLONE
     Dosage: UNK UNK, UNK
     Route: 065
     Dates: start: 2013
  7. FEXOFENADINE [Concomitant]
     Active Substance: FEXOFENADINE\FEXOFENADINE HYDROCHLORIDE
     Dosage: UNK UNK, UNK
     Route: 065
     Dates: start: 2017

REACTIONS (1)
  - Anaphylactic reaction [Recovered/Resolved with Sequelae]

NARRATIVE: CASE EVENT DATE: 20180530
